FAERS Safety Report 20841822 (Version 1)
Quarter: 2022Q2

REPORT INFORMATION
  Report Type: Spontaneous
  Country: US (occurrence: US)
  Receive Date: 20220518
  Receipt Date: 20220518
  Transmission Date: 20220720
  Serious: No
  Sender: FDA-Public Use
  Company Number: US-drreddys-SPO/USA/22/0150051

PATIENT
  Age: 64 Year
  Sex: Male

DRUGS (1)
  1. FEXOFENADINE HYDROCHLORIDE\PSEUDOEPHEDRINE HYDROCHLORIDE [Suspect]
     Active Substance: FEXOFENADINE HYDROCHLORIDE\PSEUDOEPHEDRINE HYDROCHLORIDE
     Indication: Rhinorrhoea
     Dates: start: 20220328, end: 20220428

REACTIONS (3)
  - Product use issue [Unknown]
  - Drug ineffective [Unknown]
  - Product quality issue [Unknown]
